FAERS Safety Report 22880214 (Version 3)
Quarter: 2024Q1

REPORT INFORMATION
  Report Type: Spontaneous
  Country: US (occurrence: US)
  Receive Date: 20230829
  Receipt Date: 20240109
  Transmission Date: 20240410
  Serious: Yes (Other)
  Sender: FDA-Public Use
  Company Number: US-NEUROCRINE BIOSCIENCES INC.-2023NBI07116

PATIENT
  Age: 68 Year
  Sex: Female

DRUGS (11)
  1. INGREZZA [Suspect]
     Active Substance: VALBENAZINE
     Indication: Tardive dyskinesia
     Dosage: 40 MILLIGRAM
     Route: 065
     Dates: start: 20210305
  2. CLOZARIL [Concomitant]
     Active Substance: CLOZAPINE
  3. LEVOTHYROXINE [Concomitant]
     Active Substance: LEVOTHYROXINE
  4. PEPCID [Concomitant]
     Active Substance: FAMOTIDINE
  5. HALDOL [Concomitant]
     Active Substance: HALOPERIDOL
  6. TRAZODONE [Concomitant]
     Active Substance: TRAZODONE HYDROCHLORIDE
  7. COGENTIN [Concomitant]
     Active Substance: BENZTROPINE MESYLATE
  8. VITAMIN D3 [Concomitant]
     Active Substance: CHOLECALCIFEROL
  9. LINZESS [Concomitant]
     Active Substance: LINACLOTIDE
     Indication: Constipation
  10. MIRALAX [Concomitant]
     Active Substance: POLYETHYLENE GLYCOL 3350
     Indication: Constipation
  11. OYSTER SHELL CACIUM WITH VITAMIN D [Concomitant]

REACTIONS (1)
  - Schizophrenia [Unknown]
